FAERS Safety Report 25284189 (Version 1)
Quarter: 2025Q2

REPORT INFORMATION
  Report Type: Spontaneous
  Country: US (occurrence: None)
  Receive Date: 20250508
  Receipt Date: 20250508
  Transmission Date: 20250716
  Serious: No
  Sender: INCYTE
  Company Number: US-INCYTE CORPORATION-2025IN004668

PATIENT
  Age: 68 Year

DRUGS (1)
  1. JAKAFI [Suspect]
     Active Substance: RUXOLITINIB
     Route: 065

REACTIONS (4)
  - Arthralgia [Unknown]
  - Bone pain [Unknown]
  - Pruritus [Unknown]
  - Fatigue [Unknown]
